FAERS Safety Report 6710457-9 (Version None)
Quarter: 2010Q2

REPORT INFORMATION
  Report Type: 
  Country: None (occurrence: None)
  Receive Date: 20100430
  Receipt Date: 20100421
  Transmission Date: 20101027
  Serious: Yes (Hospitalization, Other)
  Sender: FDA-Public Use
  Company Number: 2010AL002417

PATIENT
  Age: 19 Year
  Sex: Female

DRUGS (8)
  1. FEVERALL [Suspect]
     Indication: INTENTIONAL OVERDOSE
     Dosage: PO
     Route: 048
     Dates: start: 20100413, end: 20100413
  2. PHENYLEPHRINE HYDROCHLORIDE NASAL SOLTION USP, 1 % (ALPHARMA) (PHENYLE [Suspect]
     Indication: INTENTIONAL OVERDOSE
     Dosage: PO
     Route: 048
     Dates: start: 20100413, end: 20100413
  3. THEOPHYLLINE [Concomitant]
  4. ZOPICLONE [Concomitant]
  5. AMOXICILLIN [Concomitant]
  6. NYTOL [Concomitant]
  7. DO-DO CHEST-EZE [Concomitant]
  8. ALCOHOL [Concomitant]

REACTIONS (4)
  - ALCOHOL USE [None]
  - BLOOD CREATINE PHOSPHOKINASE INCREASED [None]
  - MULTIPLE DRUG OVERDOSE INTENTIONAL [None]
  - MYALGIA [None]
